FAERS Safety Report 24062055 (Version 1)
Quarter: 2024Q3

REPORT INFORMATION
  Report Type: Spontaneous
  Country: US (occurrence: None)
  Receive Date: 20240707
  Receipt Date: 20240707
  Transmission Date: 20241016
  Serious: Yes (Other)
  Sender: Public
  Company Number: None

PATIENT
  Age: 59 Year
  Sex: Female
  Weight: 56.25 kg

DRUGS (5)
  1. RECLAST [Suspect]
     Active Substance: ZOLEDRONIC ACID
     Indication: Osteoporosis
     Dosage: OTHER FREQUENCY : YEARLY INFUSION;?
     Route: 042
     Dates: start: 20240625, end: 20240625
  2. MVI for women age 50 and over [Concomitant]
  3. VITAMIN D NOS [Concomitant]
     Active Substance: CHOLECALCIFEROL\ERGOCALCIFEROL
  4. PROBIOTICS NOS [Concomitant]
     Active Substance: PROBIOTICS NOS
  5. Bone up bone building minerals [Concomitant]

REACTIONS (4)
  - Peripheral swelling [None]
  - Joint swelling [None]
  - Middle insomnia [None]
  - Pain [None]

NARRATIVE: CASE EVENT DATE: 20240630
